FAERS Safety Report 13088493 (Version 4)
Quarter: 2017Q4

REPORT INFORMATION
  Report Type: Report from Study
  Country: CO (occurrence: CO)
  Receive Date: 20170105
  Receipt Date: 20171002
  Transmission Date: 20180320
  Serious: Yes (Hospitalization, Other)
  Sender: FDA-Public Use
  Company Number: PHHY2016CO180588

PATIENT
  Age: 56 Year
  Sex: Female
  Weight: 75 kg

DRUGS (6)
  1. LOSARTAN. [Concomitant]
     Active Substance: LOSARTAN
     Indication: HYPERTENSION
     Dosage: 20 MG, QD
     Route: 048
  2. VOTRIENT [Suspect]
     Active Substance: PAZOPANIB HYDROCHLORIDE
     Indication: RENAL CELL CARCINOMA
     Dosage: 200 MG, QID
     Route: 048
     Dates: start: 20160627, end: 20170911
  3. OXYCODONE [Concomitant]
     Active Substance: OXYCODONE
     Indication: PAIN
     Dosage: UNK UNK, QD
     Route: 048
  4. HYDROCHLOROTHIAZIDE. [Concomitant]
     Active Substance: HYDROCHLOROTHIAZIDE
     Indication: FLUID RETENTION
     Dosage: 50 MG, QD
     Route: 048
  5. OMEPRAZOLE. [Concomitant]
     Active Substance: OMEPRAZOLE
     Indication: DYSPEPSIA
     Dosage: 20 MG, QD
     Route: 048
  6. DEXAMETHASONE. [Concomitant]
     Active Substance: DEXAMETHASONE
     Indication: INFLAMMATION
     Dosage: UNK UNK, PRN
     Route: 065

REACTIONS (13)
  - Metastases to skin [Unknown]
  - Drug ineffective [Unknown]
  - Neoplasm malignant [Unknown]
  - Metastases to bone [Unknown]
  - Malaise [Not Recovered/Not Resolved]
  - Neck mass [Unknown]
  - Skin lesion [Unknown]
  - Skin mass [Unknown]
  - Neck pain [Unknown]
  - Pulmonary mass [Unknown]
  - Central nervous system lesion [Unknown]
  - Inappropriate schedule of drug administration [Unknown]
  - Metastases to spine [Unknown]

NARRATIVE: CASE EVENT DATE: 20160627
